FAERS Safety Report 4667450-X (Version None)
Quarter: 2005Q2

REPORT INFORMATION
  Report Type: 
  Country: None (occurrence: None)
  Receive Date: 20050519
  Receipt Date: 20050519
  Transmission Date: 20051028
  Serious: Yes (Hospitalization)
  Sender: FDA-Public Use
  Company Number: None

PATIENT
  Age: 80 Year
  Sex: Male
  Weight: 79.7 kg

DRUGS (16)
  1. PERCOCET [Suspect]
  2. PROPRANOLOL HYDROCHLORIDE [Concomitant]
  3. ENALAPRIL MALEATE [Concomitant]
  4. RANITIDINE [Concomitant]
  5. PROCHLORPERAZINE [Concomitant]
  6. SIMVASTATIN [Concomitant]
  7. OMEPRAZOLE [Concomitant]
  8. NIFEDIPINE [Concomitant]
  9. INSULIN REG HUMAN 100 U/ ML INJ NOVOLIN R [Concomitant]
  10. FERROUS GLUCONATE [Concomitant]
  11. DOCUSATE [Concomitant]
  12. ENOXAPARIN SODIUM [Concomitant]
  13. KETOROLAC TROMETHAMINE [Concomitant]
  14. DIPHENHYDRAMINE HCL [Concomitant]
  15. MORPHINE [Concomitant]
  16. CEFAZOLIN [Concomitant]

REACTIONS (1)
  - HALLUCINATION [None]
